FAERS Safety Report 4893326-9 (Version None)
Quarter: 2006Q1

REPORT INFORMATION
  Report Type: 
  Country: None (occurrence: None)
  Receive Date: 20060124
  Receipt Date: 20060113
  Transmission Date: 20060701
  Serious: Yes (Other)
  Sender: FDA-Public Use
  Company Number: 2004022999

PATIENT
  Sex: Male
  Weight: 86.1834 kg

DRUGS (7)
  1. NEURONTIN [Suspect]
     Indication: NEUROPATHY PERIPHERAL
  2. VIAGRA [Suspect]
     Indication: ERECTILE DYSFUNCTION
  3. SERZONE [Concomitant]
  4. ECOTRIN (ACETYLSALICYLIC ACID) [Concomitant]
  5. WELLBUTRIN [Concomitant]
  6. CELEBREX (CELEXCOXIB) [Concomitant]
  7. LIPITOR [Suspect]
     Indication: BLOOD CHOLESTEROL
     Dosage: 10 MG

REACTIONS (6)
  - AMNESIA [None]
  - ANORGASMIA [None]
  - DISTURBANCE IN ATTENTION [None]
  - ERECTILE DYSFUNCTION [None]
  - TESTICULAR PAIN [None]
  - TRIPLE VESSEL BYPASS GRAFT [None]
